FAERS Safety Report 5341876-3 (Version None)
Quarter: 2007Q2

REPORT INFORMATION
  Report Type: 
  Country: None (occurrence: None)
  Receive Date: 20070601
  Receipt Date: 20070523
  Transmission Date: 20071010
  Serious: No
  Sender: FDA-Public Use
  Company Number: DE-BAXTER-2007BH004222

PATIENT
  Age: 54 Year
  Sex: Male
  Weight: 85 kg

DRUGS (2)
  1. ADVATE [Suspect]
     Indication: FACTOR VIII DEFICIENCY
     Route: 042
     Dates: start: 20070202, end: 20070202
  2. ADVATE [Suspect]
     Indication: HAEMORRHAGE
     Route: 042
     Dates: start: 20070202, end: 20070202

REACTIONS (1)
  - LIVER FUNCTION TEST ABNORMAL [None]
